FAERS Safety Report 23202061 (Version 1)
Quarter: 2023Q4

REPORT INFORMATION
  Report Type: Spontaneous
  Country: CH (occurrence: CH)
  Receive Date: 20231120
  Receipt Date: 20231120
  Transmission Date: 20240110
  Serious: Yes (Other)
  Sender: FDA-Public Use
  Company Number: CH-009507513-2311CHE006175

PATIENT
  Age: 70 Year
  Sex: Female
  Weight: 80 kg

DRUGS (5)
  1. BRIDION [Suspect]
     Active Substance: SUGAMMADEX
     Dosage: UNK
     Dates: start: 2021
  2. BRIDION [Suspect]
     Active Substance: SUGAMMADEX
     Dosage: 100 MILLIGRAM
     Dates: start: 20230924
  3. BRIDION [Suspect]
     Active Substance: SUGAMMADEX
     Dosage: 200 MILLIGRAM
     Dates: start: 20230924
  4. BRIDION [Suspect]
     Active Substance: SUGAMMADEX
     Dosage: 400 MILLIGRAM
     Dates: start: 20230924
  5. BRIDION [Suspect]
     Active Substance: SUGAMMADEX
     Dosage: 16 MILLIGRAM/KILOGRAM
     Dates: start: 20230924

REACTIONS (1)
  - Drug ineffective [Recovered/Resolved]

NARRATIVE: CASE EVENT DATE: 20230924
